FAERS Safety Report 15651987 (Version 7)
Quarter: 2019Q1

REPORT INFORMATION
  Report Type: Report from Study
  Country: US (occurrence: US)
  Receive Date: 20181123
  Receipt Date: 20190314
  Transmission Date: 20190417
  Serious: Yes (Death, Life-Threatening, Hospitalization)
  Sender: FDA-Public Use
  Company Number: US-ROCHE-2217429

PATIENT
  Age: 66 Year
  Sex: Female
  Weight: 68.3 kg

DRUGS (8)
  1. ATEZOLIZUMAB. [Suspect]
     Active Substance: ATEZOLIZUMAB
     Indication: DIFFUSE LARGE B-CELL LYMPHOMA
     Dosage: CYCLE 2+ (28 DAY CYCLE)?MOST RECENT DOSE PRIOR TO AE, 12OCT2018 (CYCLE 2 DAY 1)
     Route: 042
     Dates: start: 20181012
  2. RITUXIMAB. [Suspect]
     Active Substance: RITUXIMAB
     Indication: DIFFUSE LARGE B-CELL LYMPHOMA
     Dosage: CYCLE 1 (14 DAYS), RECEIVED ON DAY 1?CYCLE 2+ (28 DAY CYCLE), RECEIVED ON DAY 1 AND 15?MOST RECENT D
     Route: 042
     Dates: start: 20180919
  3. DIPHENHYDRAMINE. [Concomitant]
     Active Substance: DIPHENHYDRAMINE
     Route: 065
  4. LEVOFLOXACIN. [Concomitant]
     Active Substance: LEVOFLOXACIN
  5. OXALIPLATIN. [Suspect]
     Active Substance: OXALIPLATIN
     Indication: DIFFUSE LARGE B-CELL LYMPHOMA
     Dosage: CYCLE 1 (14 DAYS), RECEIVED ON DAY 1?CYCLE 2+ (28 DAY CYCLE), RECEIVED ON DAY 1 AND 15?MOST RECENT D
     Route: 042
     Dates: start: 20180919
  6. GEMCITABINE [Suspect]
     Active Substance: GEMCITABINE\GEMCITABINE HYDROCHLORIDE
     Indication: DIFFUSE LARGE B-CELL LYMPHOMA
     Dosage: CYCLE 1 (14 DAYS), RECEIVED ON DAY 1?CYCLE 2+ (28 DAY CYCLE), RECEIVED ON DAY 1 AND 15?MOST RECENT D
     Route: 042
     Dates: start: 20180919
  7. ENOXAPARIN [Concomitant]
     Active Substance: ENOXAPARIN
     Indication: THROMBOSIS PROPHYLAXIS
     Route: 065
  8. PANTOPRAZOLE [Concomitant]
     Active Substance: PANTOPRAZOLE
     Indication: PROPHYLAXIS
     Route: 065

REACTIONS (8)
  - Lung infection [Unknown]
  - Acute kidney injury [Not Recovered/Not Resolved]
  - Stevens-Johnson syndrome [Not Recovered/Not Resolved]
  - Respiratory failure [Not Recovered/Not Resolved]
  - Multiple organ dysfunction syndrome [Not Recovered/Not Resolved]
  - Bronchopulmonary aspergillosis [Fatal]
  - Cardiac arrest [Not Recovered/Not Resolved]
  - Cardiac arrest [Fatal]

NARRATIVE: CASE EVENT DATE: 20181028
